FAERS Safety Report 9336903 (Version 2)
Quarter: 2013Q2

REPORT INFORMATION
  Report Type: Spontaneous
  Country: JP (occurrence: JP)
  Receive Date: 20130607
  Receipt Date: 20130611
  Transmission Date: 20140414
  Serious: Yes (Hospitalization, Other)
  Sender: FDA-Public Use
  Company Number: PHHY2013JP036436

PATIENT
  Age: 87 Year
  Sex: Female

DRUGS (5)
  1. EXFORGE [Suspect]
     Indication: HYPERTENSION
     Dosage: 1 DF QD (VALS 80 MG. AMLO 5 MG), DAILY
     Route: 048
     Dates: start: 20111220, end: 20130322
  2. AMLODIPINE [Concomitant]
     Dosage: 2.5 MG, UKN
     Route: 048
     Dates: start: 20130322
  3. LASIX [Concomitant]
     Indication: CARDIAC FAILURE
     Dosage: 20 MG, UNK
     Route: 048
     Dates: start: 201110, end: 20130322
  4. ACARBOSE [Concomitant]
     Indication: DIABETES MELLITUS
     Dosage: 300 MG, UNK
     Route: 048
     Dates: start: 20111220
  5. VESICARE [Concomitant]
     Indication: HYPERTONIC BLADDER
     Dosage: 5 MG, UNK
     Route: 048
     Dates: start: 20111220

REACTIONS (9)
  - Sick sinus syndrome [Unknown]
  - Sinus bradycardia [Recovered/Resolved]
  - Loss of consciousness [Unknown]
  - Hyperkalaemia [Recovered/Resolved]
  - Renal impairment [Recovering/Resolving]
  - Blood pressure increased [Unknown]
  - Feeling abnormal [Unknown]
  - Malaise [Unknown]
  - Hyperhidrosis [Unknown]
